FAERS Safety Report 4681941-7 (Version None)
Quarter: 2005Q2

REPORT INFORMATION
  Report Type: 
  Country: None (occurrence: None)
  Receive Date: 20050602
  Receipt Date: 20050518
  Transmission Date: 20051028
  Serious: Yes (Other)
  Sender: FDA-Public Use
  Company Number: CIP05001252

PATIENT
  Age: 75 Year
  Sex: Female

DRUGS (7)
  1. FURADANTIN [Suspect]
     Indication: URINARY TRACT INFECTION
     Dosage: ORAL
     Route: 048
     Dates: start: 20050428, end: 20050430
  2. PREVISCAN (FLUINDIONE) [Suspect]
     Indication: ATRIAL FIBRILLATION
     Dosage: ORAL (SEE IMAGE)
     Route: 048
     Dates: start: 20030101, end: 20050430
  3. PREVISCAN (FLUINDIONE) [Suspect]
     Indication: ATRIAL FIBRILLATION
     Dosage: ORAL (SEE IMAGE)
     Route: 048
     Dates: start: 20050501
  4. LEVOTHYROXINE SODIUM [Concomitant]
  5. SOTALOL HCL [Concomitant]
  6. PRAVASTATIN [Concomitant]
  7. LERCAN (LERCANIDIPINE HYDROCHLORIDE) [Concomitant]

REACTIONS (4)
  - BLOOD URINE PRESENT [None]
  - CONDITION AGGRAVATED [None]
  - DRUG INTERACTION [None]
  - INTERNATIONAL NORMALISED RATIO INCREASED [None]
